FAERS Safety Report 6579690-3 (Version None)
Quarter: 2010Q1

REPORT INFORMATION
  Report Type: 
  Country: None (occurrence: None)
  Receive Date: 20100212
  Receipt Date: 20100202
  Transmission Date: 20100710
  Serious: Yes (Hospitalization)
  Sender: FDA-Public Use
  Company Number: IT-ROCHE-681132

PATIENT
  Sex: Male
  Weight: 69 kg

DRUGS (8)
  1. BEVACIZUMAB [Suspect]
     Indication: PLEURAL MESOTHELIOMA MALIGNANT
     Dosage: FREQUENCY: AS PER PROTOCOL,DOSAGE FORM:15 MG/KG, DATE FROM LAST DOSE PRIOR TO SAE WAS 11JANUARY2010
     Route: 042
     Dates: start: 20091015, end: 20100119
  2. PEMETREXED [Suspect]
     Indication: PLEURAL MESOTHELIOMA MALIGNANT
     Dosage: FREQUENCY: AS PER PROTOCOL, DOSAGE FORM: 500MG/M2,DATE FROM LAST DOSE PRIOR TO SAE WAS 11JANUARY2010
     Route: 042
     Dates: start: 20091015, end: 20100119
  3. CARBOPLATIN [Suspect]
     Indication: PLEURAL MESOTHELIOMA MALIGNANT
     Dosage: FREQUENCY: AS PER PROTOCOL, DOSE FORM: AUCS,DATE FROM LAST DOSE PRIOR TO SAE WAS 11JANUARY2010
     Route: 042
     Dates: start: 20091015, end: 20100119
  4. ZOFREN [Concomitant]
     Route: 048
     Dates: start: 20091015, end: 20100118
  5. FOLIGAN [Concomitant]
     Route: 048
     Dates: start: 20091015, end: 20100118
  6. DEXAMETHASONE [Concomitant]
     Dosage: TDD: 2/L
     Dates: start: 20091013
  7. OXYCONTIN [Concomitant]
     Route: 048
     Dates: start: 20091013, end: 20100118
  8. LANSOPRAZOLE [Concomitant]
     Route: 048
     Dates: start: 20091015, end: 20100118

REACTIONS (1)
  - RENAL FAILURE [None]
